FAERS Safety Report 6267250-3 (Version None)
Quarter: 2009Q3

REPORT INFORMATION
  Report Type: 
  Country: None (occurrence: None)
  Receive Date: 20090714
  Receipt Date: 20090702
  Transmission Date: 20100115
  Serious: Yes (Death, Other)
  Sender: FDA-Public Use
  Company Number: SE-PFIZER INC-2009235183

PATIENT
  Age: 60 Year

DRUGS (3)
  1. SOMATROPIN [Suspect]
     Dosage: 0.40 MG/24H, UNK
     Route: 058
     Dates: start: 20000508
  2. NORVASC [Concomitant]
     Dosage: UNK
     Dates: start: 20040114
  3. RENITEC [Concomitant]
     Dosage: 5 MG, 1X/DAY
     Route: 048
     Dates: start: 20040114, end: 20070124

REACTIONS (1)
  - DEATH [None]
